FAERS Safety Report 17760360 (Version 1)
Quarter: 2020Q2

REPORT INFORMATION
  Report Type: Spontaneous
  Country: US (occurrence: US)
  Receive Date: 20200507
  Receipt Date: 20200507
  Transmission Date: 20200714
  Serious: Yes (Hospitalization)
  Sender: FDA-Public Use
  Company Number: None

PATIENT
  Age: 45 Year
  Sex: Male

DRUGS (20)
  1. BETAMETHASONE DIPROPIONATE   TOP CREAM [Concomitant]
  2. BENZONATATE. [Concomitant]
     Active Substance: BENZONATATE
  3. VELETRI [Concomitant]
     Active Substance: EPOPROSTENOL
  4. SPIRONALACTONE [Concomitant]
     Active Substance: SPIRONOLACTONE
  5. PANTOPRAZOLE [Concomitant]
     Active Substance: PANTOPRAZOLE
  6. AMBRISENTAN 10MG TABLETS 30/BO: 10MG [Suspect]
     Active Substance: AMBRISENTAN
     Indication: PULMONARY ARTERIAL HYPERTENSION
     Route: 048
     Dates: start: 201912, end: 202003
  7. MVI [Concomitant]
     Active Substance: VITAMINS
  8. K-TAB [Concomitant]
     Active Substance: POTASSIUM CHLORIDE
  9. BUSPIRONE [Concomitant]
     Active Substance: BUSPIRONE HYDROCHLORIDE
  10. APIXABAN [Concomitant]
     Active Substance: APIXABAN
  11. EPIPEN [Concomitant]
     Active Substance: EPINEPHRINE
  12. CALCIUM CITRATE [Concomitant]
     Active Substance: CALCIUM CITRATE
  13. AMBRISENTAN [Concomitant]
     Active Substance: AMBRISENTAN
  14. XOPENEX HFA [Concomitant]
     Active Substance: LEVALBUTEROL TARTRATE
  15. ROCIGUAT [Concomitant]
  16. TORSEMIDE. [Concomitant]
     Active Substance: TORSEMIDE
  17. FERROUS GLUCONATE [Concomitant]
     Active Substance: FERROUS GLUCONATE
  18. REMERON [Concomitant]
     Active Substance: MIRTAZAPINE
  19. VITAMIN B COMPLEX [Concomitant]
     Active Substance: CYANOCOBALAMIN\DEXPANTHENOL\NIACINAMIDE\PYRIDOXINE HYDROCHLORIDE\RIBOFLAVIN 5^-PHOSPHATE SODIUM\THIAMINE HYDROCHLORIDE\VITAMIN B COMPLEX
  20. VITAMIN C [Concomitant]
     Active Substance: ASCORBIC ACID

REACTIONS (3)
  - Cardiac failure [None]
  - Lung transplant [None]
  - Condition aggravated [None]

NARRATIVE: CASE EVENT DATE: 20200306
